FAERS Safety Report 10673837 (Version 1)
Quarter: 2014Q4

REPORT INFORMATION
  Report Type: Spontaneous
  Country: GB (occurrence: None)
  Receive Date: 20141222
  Receipt Date: 20141222
  Transmission Date: 20150529
  Serious: Yes (Other)
  Sender: FDA-Public Use
  Company Number: FK201406248

PATIENT
  Age: 56 Year
  Sex: Female
  Weight: 83 kg

DRUGS (8)
  1. INSULIN ASPART [Concomitant]
     Active Substance: INSULIN ASPART
  2. ASPIRIN COATED (ACETYLSALICYLIC ACID) [Concomitant]
  3. LETROZOLE (MANUFACTURER UNKNOWN) (LETROZOLE) (LETROZOLE) [Suspect]
     Active Substance: LETROZOLE
     Indication: PROPHYLAXIS
     Dosage: 2.5 MG, 1 IN 1 D, ORAL?
     Route: 048
     Dates: start: 20140501
  4. IBUPROFEN. [Concomitant]
     Active Substance: IBUPROFEN
  5. LEVEMIR [Concomitant]
     Active Substance: INSULIN DETEMIR
  6. PARACETAMOL [Concomitant]
     Active Substance: ACETAMINOPHEN
  7. METFORMIN HYDROCHLORIDE (METFORMIN HYDROCHLORIDE) [Concomitant]
     Active Substance: METFORMIN HYDROCHLORIDE
  8. LETROZOLE (MANUFACTURER UNKNOWN) (LETROZOLE) (LETROZOLE) [Suspect]
     Active Substance: LETROZOLE
     Indication: BREAST CANCER METASTATIC
     Dosage: 2.5 MG, 1 IN 1 D, ORAL?
     Route: 048
     Dates: start: 20140501

REACTIONS (10)
  - Night sweats [None]
  - Arthralgia [None]
  - Dyspareunia [None]
  - Carpal tunnel syndrome [None]
  - Insomnia [None]
  - Pain in extremity [None]
  - Trigger finger [None]
  - Hot flush [None]
  - Rash [None]
  - Vulvovaginal dryness [None]

NARRATIVE: CASE EVENT DATE: 20140601
